FAERS Safety Report 7270575-6 (Version None)
Quarter: 2011Q1

REPORT INFORMATION
  Report Type: 
  Country: None (occurrence: None)
  Receive Date: 20110124
  Receipt Date: 20110124
  Transmission Date: 20110831
  Serious: No
  Sender: FDA-Public Use
  Company Number: None

PATIENT
  Age: 40 Year
  Sex: Female
  Weight: 83.9154 kg

DRUGS (1)
  1. TOPAMAX [Suspect]
     Indication: MIGRAINE
     Dosage: 50 MG 2 TIMES PER DAY PO
     Route: 048
     Dates: start: 20110121, end: 20110123

REACTIONS (2)
  - RASH [None]
  - PRODUCT QUALITY ISSUE [None]
